FAERS Safety Report 26010752 (Version 1)
Quarter: 2025Q4

REPORT INFORMATION
  Report Type: Spontaneous
  Country: EU (occurrence: EU)
  Receive Date: 20251107
  Receipt Date: 20251107
  Transmission Date: 20260118
  Serious: Yes (Hospitalization)
  Sender: RANBAXY
  Company Number: EU-AFSSAPS-PB2025000838

PATIENT
  Age: 78 Year
  Sex: Female
  Weight: 82 kg

DRUGS (8)
  1. PREGABALIN [Suspect]
     Active Substance: PREGABALIN
     Indication: Poisoning deliberate
     Dosage: 700 MILLIGRAM, IN TOTAL
     Route: 048
     Dates: start: 20250709, end: 20250709
  2. ZOPICLONE [Suspect]
     Active Substance: ZOPICLONE
     Indication: Poisoning deliberate
     Dosage: 105 MILLIGRAM, IN TOTAL
     Route: 048
     Dates: start: 20250709, end: 20250709
  3. RAMIPRIL [Suspect]
     Active Substance: RAMIPRIL
     Indication: Poisoning deliberate
     Dosage: 10 DOSAGE FORM, IN TOTAL
     Route: 048
     Dates: start: 20250709, end: 20250709
  4. OXAZEPAM [Suspect]
     Active Substance: OXAZEPAM
     Indication: Poisoning deliberate
     Dosage: 15 DOSAGE FORM, IN TOTAL
     Route: 048
     Dates: start: 20250709, end: 20250709
  5. LERCANIDIPINE [Suspect]
     Active Substance: LERCANIDIPINE
     Indication: Poisoning deliberate
     Dosage: 15 DOSAGE FORM, IN TOTAL
     Route: 048
     Dates: start: 20250709, end: 20250709
  6. HYDROCHLOROTHIAZIDE [Suspect]
     Active Substance: HYDROCHLOROTHIAZIDE
     Indication: Poisoning deliberate
     Dosage: 10 DOSAGE FORM, IN TOTAL
     Route: 048
     Dates: start: 20250709, end: 20250709
  7. TRAMADOL [Suspect]
     Active Substance: TRAMADOL
     Indication: Poisoning deliberate
     Dosage: 20 DOSAGE FORM
     Route: 048
     Dates: start: 20250709, end: 20250709
  8. MIANSERIN HYDROCHLORIDE [Suspect]
     Active Substance: MIANSERIN HYDROCHLORIDE
     Indication: Poisoning deliberate
     Dosage: 7 DOSAGE FORM, IN TOTAL
     Route: 048
     Dates: start: 20250709, end: 20250709

REACTIONS (4)
  - Poisoning deliberate [Recovered/Resolved]
  - Coma [Recovered/Resolved]
  - Oxygen saturation decreased [Recovered/Resolved]
  - Pneumonia aspiration [Recovered/Resolved]

NARRATIVE: CASE EVENT DATE: 20250709
